FAERS Safety Report 6752053-3 (Version None)
Quarter: 2010Q2

REPORT INFORMATION
  Report Type: 
  Country: None (occurrence: None)
  Receive Date: 20100602
  Receipt Date: 20100519
  Transmission Date: 20101027
  Serious: Yes (Hospitalization, Other)
  Sender: FDA-Public Use
  Company Number: US-ELI_LILLY_AND_COMPANY-US201005006639

PATIENT
  Sex: Female

DRUGS (4)
  1. FORTEO [Suspect]
     Indication: OSTEOPOROSIS
     Dosage: 20 UG, DAILY (1/D)
     Dates: start: 20090501
  2. PLAVIX [Concomitant]
  3. DIOVAN [Concomitant]
  4. NORVASC [Concomitant]

REACTIONS (3)
  - HEART RATE INCREASED [None]
  - INJECTION SITE HAEMATOMA [None]
  - INTERVERTEBRAL DISC DISORDER [None]
